FAERS Safety Report 4551146-9 (Version None)
Quarter: 2005Q1

REPORT INFORMATION
  Report Type: 
  Country: None (occurrence: None)
  Receive Date: 20050113
  Receipt Date: 20050104
  Transmission Date: 20050727
  Serious: Yes (Other)
  Sender: FDA-Public Use
  Company Number: AR-JNJFOC-20041206309

PATIENT
  Sex: Male
  Weight: 17.3 kg

DRUGS (4)
  1. INFLIXIMAB [Suspect]
     Route: 042
  2. METHOTREXATE [Concomitant]
  3. SULFASALAZINE [Concomitant]
  4. MEPREDNISONE [Concomitant]

REACTIONS (1)
  - LYMPHOMA [None]
